FAERS Safety Report 11068712 (Version 21)
Quarter: 2016Q4

REPORT INFORMATION
  Report Type: Report from Study
  Country: CA (occurrence: CA)
  Receive Date: 20150427
  Receipt Date: 20161228
  Transmission Date: 20170206
  Serious: Yes (Other)
  Sender: FDA-Public Use
  Company Number: CA-ROCHE-1477533

PATIENT
  Age: 52 Year
  Sex: Female

DRUGS (21)
  1. XOLAIR [Suspect]
     Active Substance: OMALIZUMAB
     Route: 058
     Dates: start: 20140929
  2. GAMMA GLOBULIN [Concomitant]
     Active Substance: IMMUNE GLOBULIN NOS
     Indication: PRODUCT USED FOR UNKNOWN INDICATION
     Dosage: ONCE PER WEEK FOR 3 WEEKS.
     Route: 041
  3. XOLAIR [Suspect]
     Active Substance: OMALIZUMAB
     Route: 058
     Dates: start: 20160906
  4. XOLAIR [Suspect]
     Active Substance: OMALIZUMAB
     Route: 058
     Dates: start: 20150914
  5. XOLAIR [Suspect]
     Active Substance: OMALIZUMAB
     Route: 058
     Dates: start: 20160627
  6. XOLAIR [Suspect]
     Active Substance: OMALIZUMAB
     Route: 058
     Dates: start: 20160711
  7. XOLAIR [Suspect]
     Active Substance: OMALIZUMAB
     Route: 058
     Dates: start: 20160808, end: 20160808
  8. XOLAIR [Suspect]
     Active Substance: OMALIZUMAB
     Route: 058
     Dates: start: 20150316
  9. XOLAIR [Suspect]
     Active Substance: OMALIZUMAB
     Route: 058
     Dates: start: 20150427
  10. GAMMA GLOBULIN [Concomitant]
     Active Substance: IMMUNE GLOBULIN NOS
     Dosage: UNK
     Route: 041
     Dates: start: 20150226
  11. XOLAIR [Suspect]
     Active Substance: OMALIZUMAB
     Dosage: UNK
     Route: 058
     Dates: start: 20161003
  12. XOLAIR [Suspect]
     Active Substance: OMALIZUMAB
     Dosage: UNK
     Route: 065
     Dates: start: 20161205
  13. XOLAIR [Suspect]
     Active Substance: OMALIZUMAB
     Route: 058
     Dates: start: 20151109
  14. XOLAIR [Suspect]
     Active Substance: OMALIZUMAB
     Route: 058
     Dates: start: 20160321
  15. XOLAIR [Suspect]
     Active Substance: OMALIZUMAB
     Route: 058
     Dates: start: 20160502
  16. XOLAIR [Suspect]
     Active Substance: OMALIZUMAB
     Route: 058
     Dates: start: 20150119
  17. XOLAIR [Suspect]
     Active Substance: OMALIZUMAB
     Route: 058
     Dates: start: 20151207
  18. REACTINE (CANADA) [Concomitant]
     Active Substance: CETIRIZINE HYDROCHLORIDE
     Indication: PRODUCT USED FOR UNKNOWN INDICATION
     Route: 065
  19. LYRICA [Concomitant]
     Active Substance: PREGABALIN
     Indication: PRODUCT USED FOR UNKNOWN INDICATION
     Dosage: 1 DF, QD
     Route: 065
  20. XOLAIR [Suspect]
     Active Substance: OMALIZUMAB
     Indication: CHRONIC SPONTANEOUS URTICARIA
     Route: 058
     Dates: start: 20140912
  21. XOLAIR [Suspect]
     Active Substance: OMALIZUMAB
     Route: 058
     Dates: start: 20150105

REACTIONS (50)
  - Angioedema [Unknown]
  - Dyspnoea exertional [Unknown]
  - Face oedema [Unknown]
  - Headache [Recovered/Resolved]
  - Chest pain [Unknown]
  - Body temperature increased [Unknown]
  - Urticaria [Unknown]
  - Burning sensation [Unknown]
  - Insomnia [Unknown]
  - Abdominal pain upper [Unknown]
  - Heart rate increased [Not Recovered/Not Resolved]
  - Chest discomfort [Unknown]
  - Feeling abnormal [Unknown]
  - Musculoskeletal pain [Unknown]
  - Animal bite [Unknown]
  - Hepatic steatosis [Unknown]
  - Abdominal discomfort [Unknown]
  - Dysphonia [Unknown]
  - Asthma [Recovering/Resolving]
  - Back pain [Unknown]
  - Influenza like illness [Unknown]
  - Psychotic disorder [Unknown]
  - Erythema [Unknown]
  - Hypoaesthesia oral [Unknown]
  - Dry eye [Unknown]
  - Fatigue [Unknown]
  - Temperature intolerance [Unknown]
  - Dyspnoea at rest [Unknown]
  - Pruritus [Recovered/Resolved]
  - Arthritis [Unknown]
  - Injection site bruising [Unknown]
  - Foreign body sensation in eyes [Unknown]
  - Bone pain [Unknown]
  - Muscle contractions involuntary [Unknown]
  - Myalgia [Unknown]
  - Nervousness [Unknown]
  - Injection site reaction [Unknown]
  - Blood pressure increased [Unknown]
  - Hypersensitivity [Unknown]
  - Formication [Unknown]
  - Nausea [Unknown]
  - Stress [Unknown]
  - Flushing [Unknown]
  - Chills [Unknown]
  - Migraine [Not Recovered/Not Resolved]
  - Lymphadenopathy [Unknown]
  - Irritability [Unknown]
  - Fibromyalgia [Unknown]
  - Musculoskeletal stiffness [Unknown]
  - Drug ineffective [Unknown]

NARRATIVE: CASE EVENT DATE: 20140912
